FAERS Safety Report 6080517-7 (Version None)
Quarter: 2009Q1

REPORT INFORMATION
  Report Type: 
  Country: None (occurrence: None)
  Receive Date: 20090217
  Receipt Date: 20090211
  Transmission Date: 20090719
  Serious: Yes (Congenital Anomaly)
  Sender: FDA-Public Use
  Company Number: A0748198A

PATIENT
  Sex: Female
  Weight: 4 kg

DRUGS (16)
  1. PAXIL [Suspect]
     Indication: DEPRESSION
  2. PAROXETINE HCL [Suspect]
     Indication: DEPRESSION
     Dosage: 40MG PER DAY
     Dates: start: 20070301
  3. VITAMIN AND MINERAL PRENATAL SUPPLEMENT W/ FOLIC ACID CAP [Concomitant]
  4. INSULIN [Concomitant]
  5. ISOSORBIDE MONONITRATE [Concomitant]
  6. FLUOXETINE HCL [Concomitant]
  7. METOPROLOL TARTRATE [Concomitant]
  8. METOCLOPRAMIDE [Concomitant]
  9. GLUCAGON [Concomitant]
  10. ASPIRIN [Concomitant]
  11. PLAVIX [Concomitant]
  12. NITROGLYCERIN [Concomitant]
  13. ZOCOR [Concomitant]
     Dates: end: 20070601
  14. SIMVASTATIN [Concomitant]
  15. TRAZODONE HCL [Concomitant]
  16. ROCEPHIN [Concomitant]
     Dates: start: 20070701

REACTIONS (4)
  - ASTHMA [None]
  - DRUG EXPOSURE DURING PREGNANCY [None]
  - MULTIPLE CONGENITAL ABNORMALITIES [None]
  - RESPIRATORY DISTRESS [None]
